FAERS Safety Report 6155139-X (Version None)
Quarter: 2009Q2

REPORT INFORMATION
  Report Type: 
  Country: None (occurrence: None)
  Receive Date: 20090415
  Receipt Date: 20070503
  Transmission Date: 20091009
  Serious: Yes (Hospitalization, Other)
  Sender: FDA-Public Use
  Company Number: US-ASTRAZENECA-2006UW10980

PATIENT
  Age: 61 Year
  Sex: Female
  Weight: 68.5 kg

DRUGS (20)
  1. SEROQUEL [Suspect]
     Indication: MENTAL DISORDER
     Route: 048
     Dates: start: 20020101, end: 20030101
  2. SEROQUEL [Suspect]
     Indication: DEPRESSION
     Route: 048
     Dates: start: 20020101, end: 20030101
  3. SEROQUEL [Suspect]
     Indication: PARANOIA
     Route: 048
     Dates: start: 20020101, end: 20030101
  4. SEROQUEL [Suspect]
     Route: 048
     Dates: start: 20051201
  5. SEROQUEL [Suspect]
     Route: 048
     Dates: start: 20051201
  6. SEROQUEL [Suspect]
     Route: 048
     Dates: start: 20051201
  7. ZYPREXA [Suspect]
     Dates: start: 20000101, end: 20050101
  8. RISPERDAL [Suspect]
     Dates: start: 20020101, end: 20030101
  9. CORGARD [Concomitant]
  10. PAXIL [Concomitant]
  11. DETROL [Concomitant]
  12. HUMALOG [Concomitant]
  13. LIPITOR [Concomitant]
  14. RAMIPRIL [Concomitant]
  15. ASPIRIN [Concomitant]
  16. NORVASC [Concomitant]
  17. K-DUR [Concomitant]
  18. LANTUS [Concomitant]
  19. NOTROSTAT [Concomitant]
  20. TRANDATE [Concomitant]

REACTIONS (23)
  - ABDOMINAL DISTENSION [None]
  - ABNORMAL LOSS OF WEIGHT [None]
  - ANAEMIA [None]
  - BACK PAIN [None]
  - CEREBROVASCULAR ACCIDENT [None]
  - COSTOVERTEBRAL ANGLE TENDERNESS [None]
  - DIABETES MELLITUS [None]
  - DYSPEPSIA [None]
  - ELECTROCARDIOGRAM QT PROLONGED [None]
  - FLANK PAIN [None]
  - GASTROOESOPHAGEAL REFLUX DISEASE [None]
  - HEADACHE [None]
  - HYPERLIPIDAEMIA [None]
  - HYPERTENSION [None]
  - HYPOAESTHESIA [None]
  - HYPOKALAEMIA [None]
  - MASS [None]
  - NEOPLASM SKIN [None]
  - PANIC ATTACK [None]
  - PULMONARY MASS [None]
  - RENAL FAILURE ACUTE [None]
  - RENAL FAILURE CHRONIC [None]
  - VASCULAR DEMENTIA [None]
